FAERS Safety Report 12293587 (Version 1)
Quarter: 2016Q2

REPORT INFORMATION
  Report Type: Spontaneous
  Country: US (occurrence: US)
  Receive Date: 20160421
  Receipt Date: 20160421
  Transmission Date: 20160815
  Serious: Yes (Other)
  Sender: FDA-Public Use
  Company Number: US-LUNDBECK-DKLU2012779

PATIENT
  Age: 45 Year
  Sex: Female

DRUGS (1)
  1. NORTHERA [Suspect]
     Active Substance: DROXIDOPA
     Indication: ORTHOSTATIC HYPOTENSION
     Route: 048
     Dates: start: 20151029

REACTIONS (5)
  - Gastrointestinal haemorrhage [Unknown]
  - Vomiting [Unknown]
  - Generalised tonic-clonic seizure [Unknown]
  - Nausea [Unknown]
  - Abdominal injury [Unknown]

NARRATIVE: CASE EVENT DATE: 20160411
